FAERS Safety Report 7988246-7 (Version None)
Quarter: 2011Q4

REPORT INFORMATION
  Report Type: 
  Country: None (occurrence: None)
  Receive Date: 20111216
  Receipt Date: 20110208
  Transmission Date: 20120403
  Serious: No
  Sender: FDA-Public Use
  Company Number: US-ABBOTT-11P-163-0804122-00

PATIENT
  Age: 48 Year
  Sex: Female
  Weight: 56.818 kg

DRUGS (4)
  1. ESTRADIOL [Suspect]
     Dosage: DAILY DOSE: 1 MILLIGRAM(S)
     Route: 048
     Dates: start: 20110207, end: 20110208
  2. PROGESTERONE [Suspect]
     Indication: PROGESTERONE DECREASED
     Dosage: DAILY DOSE: 200 MILLIGRAM(S)
     Route: 048
     Dates: start: 20110204, end: 20110206
  3. ESTRADIOL [Suspect]
     Indication: BLOOD OESTROGEN DECREASED
     Dosage: DAILY DOSE: 1 MILLIGRAM(S)
     Route: 048
     Dates: start: 20110204, end: 20110206
  4. PROGESTERONE [Suspect]
     Dosage: DAILY DOSE: 200 MILLIGRAM(S)
     Route: 048
     Dates: start: 20110207, end: 20110208

REACTIONS (1)
  - NAUSEA [None]
